FAERS Safety Report 19254922 (Version 1)
Quarter: 2021Q2

REPORT INFORMATION
  Report Type: Spontaneous
  Country: EG (occurrence: US)
  Receive Date: 20210513
  Receipt Date: 20210513
  Transmission Date: 20210717
  Serious: Yes (Hospitalization, Other)
  Sender: FDA-Public Use
  Company Number: EG-AUROBINDO-AUR-APL-2021-018691

PATIENT
  Age: 33 Year
  Sex: Male

DRUGS (1)
  1. PHENTERMINE. [Suspect]
     Active Substance: PHENTERMINE
     Indication: OBESITY
     Dosage: UNK
     Route: 065

REACTIONS (18)
  - Ejection fraction decreased [Recovering/Resolving]
  - Dyspnoea [Recovering/Resolving]
  - Cough [Recovering/Resolving]
  - Tachypnoea [Recovering/Resolving]
  - Pleural effusion [Recovering/Resolving]
  - Mitral valve incompetence [Recovering/Resolving]
  - Cardiac failure congestive [Recovering/Resolving]
  - Congestive cardiomyopathy [Recovering/Resolving]
  - Sinus tachycardia [Recovering/Resolving]
  - Oedema [Recovering/Resolving]
  - Brain natriuretic peptide increased [Recovering/Resolving]
  - Rales [Recovering/Resolving]
  - Blood creatinine increased [Recovering/Resolving]
  - Aspartate aminotransferase increased [Recovering/Resolving]
  - Hypoxia [Recovering/Resolving]
  - Tricuspid valve incompetence [Recovering/Resolving]
  - Alanine aminotransferase increased [Recovering/Resolving]
  - Heart sounds abnormal [Recovering/Resolving]
